FAERS Safety Report 11930438 (Version 1)
Quarter: 2016Q1

REPORT INFORMATION
  Report Type: Spontaneous
  Country: US (occurrence: None)
  Receive Date: 20160120
  Receipt Date: 20160120
  Transmission Date: 20160526
  Serious: Yes (Hospitalization)
  Sender: FDA-Public Use
  Company Number: None

PATIENT
  Age: 67 Year
  Sex: Female
  Weight: 50.34 kg

DRUGS (13)
  1. GABAPENTIN. [Concomitant]
     Active Substance: GABAPENTIN
  2. LOPRESSOR [Concomitant]
     Active Substance: METOPROLOL TARTRATE
  3. MORPHINE [Concomitant]
     Active Substance: MORPHINE
  4. PREDNISONE. [Concomitant]
     Active Substance: PREDNISONE
  5. TORADOL [Concomitant]
     Active Substance: KETOROLAC TROMETHAMINE
  6. OXYCONTIN [Concomitant]
     Active Substance: OXYCODONE HYDROCHLORIDE
  7. DILAUDID [Concomitant]
     Active Substance: HYDROMORPHONE HYDROCHLORIDE
  8. ACETAMINOPHEN. [Concomitant]
     Active Substance: ACETAMINOPHEN
  9. ATARAX [Concomitant]
     Active Substance: HYDROXYZINE\HYDROXYZINE HYDROCHLORIDE
  10. HARVONI [Suspect]
     Active Substance: LEDIPASVIR\SOFOSBUVIR
     Indication: HEPATITIS C
     Dosage: 90/MG/400MG QD PO
     Route: 048
     Dates: start: 20150624, end: 20151209
  11. NORCO [Concomitant]
     Active Substance: ACETAMINOPHEN\HYDROCODONE BITARTRATE
  12. ZOFRAN [Concomitant]
     Active Substance: ONDANSETRON HYDROCHLORIDE
  13. OXYCODONE [Concomitant]
     Active Substance: OXYCODONE

REACTIONS (3)
  - Pathological fracture [None]
  - Lumbar vertebral fracture [None]
  - Sciatica [None]

NARRATIVE: CASE EVENT DATE: 20151013
